FAERS Safety Report 8076705-0 (Version None)
Quarter: 2012Q1

REPORT INFORMATION
  Report Type: 
  Country: None (occurrence: None)
  Receive Date: 20120127
  Receipt Date: 20120120
  Transmission Date: 20120608
  Serious: Yes (Life-Threatening, Hospitalization)
  Sender: FDA-Public Use
  Company Number: US-BAYER-2011-030947

PATIENT
  Age: 35 Year
  Sex: Female
  Weight: 61 kg

DRUGS (5)
  1. ALPRAZOLAM [Concomitant]
     Dosage: 0.25 MG, PRN
     Route: 048
  2. IBUPROFEN [Concomitant]
  3. YAZ [Suspect]
     Indication: ORAL CONTRACEPTION
     Dosage: UNK
     Dates: start: 20091101, end: 20100201
  4. YASMIN [Suspect]
     Indication: ORAL CONTRACEPTION
     Dosage: UNK
  5. DROSPIRENONE AND ETHINYL ESTRADIOL [Suspect]
     Indication: ORAL CONTRACEPTION
     Dosage: UNK
     Dates: start: 20080801, end: 20080901

REACTIONS (6)
  - ANXIETY [None]
  - ANHEDONIA [None]
  - INJURY [None]
  - THROMBOSIS [None]
  - PULMONARY EMBOLISM [None]
  - PAIN [None]
